FAERS Safety Report 10359961 (Version 1)
Quarter: 2014Q3

REPORT INFORMATION
  Report Type: Spontaneous
  Country: US (occurrence: None)
  Receive Date: 20140801
  Receipt Date: 20140801
  Transmission Date: 20150326
  Serious: Yes (Death)
  Sender: FDA-Public Use
  Company Number: None

PATIENT
  Age: 65 Year
  Sex: Male
  Weight: 123 kg

DRUGS (14)
  1. TOPICORT [Concomitant]
     Active Substance: DESOXIMETASONE
  2. LISINOPRIL AND HYDROCHLOROTHIAZIDE [Concomitant]
     Active Substance: HYDROCHLOROTHIAZIDE\LISINOPRIL
  3. PRIMIDONE. [Concomitant]
     Active Substance: PRIMIDONE
  4. VIAGRA [Concomitant]
     Active Substance: SILDENAFIL CITRATE
  5. FLUTICASONE [Concomitant]
     Active Substance: FLUTICASONE\FLUTICASONE PROPIONATE
  6. METOPROLOL [Concomitant]
     Active Substance: METOPROLOL
  7. EFFEXOR XR [Concomitant]
     Active Substance: VENLAFAXINE HYDROCHLORIDE
  8. AMBIEN [Concomitant]
     Active Substance: ZOLPIDEM TARTRATE
  9. LIPITOR [Concomitant]
     Active Substance: ATORVASTATIN CALCIUM
  10. ASA [Concomitant]
     Active Substance: ASPIRIN
  11. ETODOLAC. [Concomitant]
     Active Substance: ETODOLAC
  12. MVI [Concomitant]
     Active Substance: VITAMINS
  13. OMEPRAZOLE. [Concomitant]
     Active Substance: OMEPRAZOLE
  14. LISINOPRIL/HCTZ 20/12.5 LUPIN [Suspect]
     Active Substance: HYDROCHLOROTHIAZIDE\LISINOPRIL
     Indication: HYPERTENSION
     Route: 048
     Dates: start: 20080703, end: 20140227

REACTIONS (6)
  - Swollen tongue [None]
  - Pulse absent [None]
  - Dyspnoea [None]
  - Hyperhidrosis [None]
  - Pallor [None]
  - Angioedema [None]

NARRATIVE: CASE EVENT DATE: 20140227
